FAERS Safety Report 8373844-1 (Version None)
Quarter: 2012Q2

REPORT INFORMATION
  Report Type: 
  Country: None (occurrence: None)
  Receive Date: 20120521
  Receipt Date: 20120507
  Transmission Date: 20120825
  Serious: Yes (Hospitalization)
  Sender: FDA-Public Use
  Company Number: US-ACTELION-A-US2011-45425

PATIENT

DRUGS (19)
  1. COUMADIN [Concomitant]
  2. DIURETICS [Concomitant]
  3. POTASSIUM CHLORIDE [Concomitant]
  4. ADCIRCA [Concomitant]
  5. EPOPROSTENOL SODIUM [Suspect]
     Indication: PULMONARY ARTERIAL HYPERTENSION
     Dosage: 56 NG/KG, PER MIN
     Route: 042
     Dates: start: 20101210
  6. OXYGEN [Concomitant]
  7. SPIRONOLACTONE [Concomitant]
  8. FERROUS SULFATE TAB [Concomitant]
  9. ALBUTEROL SULFATE AND IPRATROPIUM BROMIDE [Concomitant]
  10. ZOLPIDEM [Concomitant]
  11. VICODIN [Concomitant]
  12. TADALAFIL [Concomitant]
  13. METOLAZONE [Concomitant]
  14. VITAMIN D [Concomitant]
  15. FUROSEMIDE [Concomitant]
  16. ACETAMINOPHEN [Concomitant]
  17. ADVAIR DISKUS 100/50 [Concomitant]
  18. TRACLEER [Suspect]
     Indication: PULMONARY ARTERIAL HYPERTENSION
     Dosage: UNK
     Route: 048
     Dates: start: 20090201
  19. EPOPROSTENOL SODIUM [Suspect]
     Dosage: 71 NG/KG, PER MIN
     Route: 042
     Dates: start: 20110101

REACTIONS (11)
  - CONDITION AGGRAVATED [None]
  - NASOPHARYNGITIS [None]
  - FLUID OVERLOAD [None]
  - ANAEMIA [None]
  - EPISTAXIS [None]
  - RENAL FAILURE [None]
  - OEDEMA PERIPHERAL [None]
  - FLUID RETENTION [None]
  - THROMBOCYTOPENIA [None]
  - DYSPNOEA [None]
  - RIGHT VENTRICULAR FAILURE [None]
